FAERS Safety Report 7418361-8 (Version None)
Quarter: 2011Q2

REPORT INFORMATION
  Report Type: 
  Country: None (occurrence: None)
  Receive Date: 20110415
  Receipt Date: 20110224
  Transmission Date: 20111010
  Serious: Yes (Disabling)
  Sender: FDA-Public Use
  Company Number: B0703909A

PATIENT
  Sex: Male

DRUGS (7)
  1. ERGENYL [Suspect]
     Indication: EPILEPSY
     Dosage: 1000MG TWICE PER DAY
     Route: 048
     Dates: start: 20010101
  2. OXCARBAZEPINE [Suspect]
     Indication: EPILEPSY
     Route: 065
  3. LAMOTRIGINE [Suspect]
     Indication: EPILEPSY
     Route: 065
  4. BARBITURATES [Suspect]
     Indication: EPILEPSY
     Route: 065
  5. PREGABALIN [Suspect]
     Indication: EPILEPSY
     Dosage: 50MG PER DAY
     Route: 048
     Dates: start: 20070301
  6. KEPPRA [Suspect]
     Indication: EPILEPSY
     Dosage: 1000MG TWICE PER DAY
     Route: 048
     Dates: start: 20090101
  7. CARBAMAZEPINE [Suspect]
     Indication: EPILEPSY
     Route: 065

REACTIONS (1)
  - OPTIC ATROPHY [None]
